FAERS Safety Report 12625133 (Version 1)
Quarter: 2016Q3

REPORT INFORMATION
  Report Type: Spontaneous
  Country: US (occurrence: US)
  Receive Date: 20160805
  Receipt Date: 20160805
  Transmission Date: 20161109
  Serious: No
  Sender: FDA-Public Use
  Company Number: US-ASTRAZENECA-2016SE72567

PATIENT
  Age: 657 Month
  Sex: Male
  Weight: 83.9 kg

DRUGS (2)
  1. BYDUREON [Suspect]
     Active Substance: EXENATIDE
     Indication: TYPE 2 DIABETES MELLITUS
     Route: 058
     Dates: end: 201605
  2. ELYXABIA [Suspect]
     Active Substance: UNSPECIFIED INGREDIENT
     Route: 065

REACTIONS (4)
  - Hypersensitivity [Unknown]
  - Intentional product misuse [Unknown]
  - Skin discolouration [Unknown]
  - Malaise [Unknown]

NARRATIVE: CASE EVENT DATE: 201605
